FAERS Safety Report 10257432 (Version 1)
Quarter: 2014Q2

REPORT INFORMATION
  Report Type: Spontaneous
  Country: GB (occurrence: GB)
  Receive Date: 20140625
  Receipt Date: 20140625
  Transmission Date: 20141212
  Serious: Yes (Other)
  Sender: FDA-Public Use
  Company Number: GB-AMGEN INC.-GBRSP2014046503

PATIENT
  Age: 50 Year
  Sex: Male

DRUGS (2)
  1. FILGRASTIM [Suspect]
     Indication: NEUTROPHIL COUNT INCREASED
     Dosage: 30 MIU, TWICE WEEKLY
     Route: 058
     Dates: start: 20140422
  2. CLOZARIL [Suspect]
     Indication: SCHIZOPHRENIA
     Dosage: UNK
     Route: 048
     Dates: start: 20060417

REACTIONS (2)
  - White blood cell count increased [Recovered/Resolved]
  - Neutrophil count increased [Unknown]
